FAERS Safety Report 7349947-7 (Version None)
Quarter: 2011Q1

REPORT INFORMATION
  Report Type: 
  Country: None (occurrence: None)
  Receive Date: 20110314
  Receipt Date: 20110303
  Transmission Date: 20110831
  Serious: Yes (Hospitalization)
  Sender: FDA-Public Use
  Company Number: US-ASTRAZENECA-2010SE38919

PATIENT
  Age: 71 Year
  Sex: Female
  Weight: 100.7 kg

DRUGS (3)
  1. BLOOD PRESSURE MEDICINE [Concomitant]
     Indication: BLOOD PRESSURE ABNORMAL
     Dosage: DAILY
     Route: 048
  2. ALPRAZOLAM [Concomitant]
     Indication: STRESS
     Dosage: PRN
     Route: 048
  3. SEROQUEL [Suspect]
     Indication: BIPOLAR DISORDER
     Route: 048
     Dates: start: 20091001

REACTIONS (8)
  - INFLUENZA [None]
  - ABDOMINAL DISTENSION [None]
  - GALLBLADDER DISORDER [None]
  - EXTRASYSTOLES [None]
  - DRY MOUTH [None]
  - ADVERSE DRUG REACTION [None]
  - TACHYCARDIA [None]
  - WEIGHT INCREASED [None]
